FAERS Safety Report 8241870-9 (Version None)
Quarter: 2012Q1

REPORT INFORMATION
  Report Type: 
  Country: None (occurrence: None)
  Receive Date: 20120328
  Receipt Date: 20120319
  Transmission Date: 20120608
  Serious: Yes (Other)
  Sender: FDA-Public Use
  Company Number: VE-BRISTOL-MYERS SQUIBB COMPANY-16404998

PATIENT
  Age: 64 Year
  Sex: Female

DRUGS (6)
  1. ORENCIA [Suspect]
     Indication: RHEUMATOID ARTHRITIS
     Route: 042
     Dates: start: 20110830, end: 20110830
  2. COZAAR [Concomitant]
  3. PROPAFENONE HCL [Concomitant]
  4. PROPAFENONE HCL [Concomitant]
  5. LOSARTAN POTASSIUM [Concomitant]
  6. CARVEDILOL [Concomitant]

REACTIONS (1)
  - HYPERTENSIVE CRISIS [None]
